FAERS Safety Report 24838941 (Version 1)
Quarter: 2025Q1

REPORT INFORMATION
  Report Type: Report from Study
  Country: HU (occurrence: HU)
  Receive Date: 20250114
  Receipt Date: 20250114
  Transmission Date: 20250408
  Serious: Yes (Death, Hospitalization)
  Sender: ABBVIE
  Company Number: HU-ABBVIE-6081722

PATIENT
  Age: 75 Year
  Sex: Male

DRUGS (10)
  1. CARBIDOPA\LEVODOPA [Suspect]
     Active Substance: CARBIDOPA\LEVODOPA
     Indication: Parkinson^s disease
     Route: 050
     Dates: start: 20170310
  2. CARBIDOPA\LEVODOPA [Suspect]
     Active Substance: CARBIDOPA\LEVODOPA
  3. VITAMIN B12 [Concomitant]
     Active Substance: CYANOCOBALAMIN
     Indication: Prophylaxis
     Dosage: 1000 MICROGRAM / ML AMPOULE
     Route: 030
  4. CARBIDOPA\ENTACAPONE\LEVODOPA [Concomitant]
     Active Substance: CARBIDOPA\ENTACAPONE\LEVODOPA
     Indication: Parkinson^s disease
     Route: 048
  5. VINPOCETINE [Concomitant]
     Active Substance: VINPOCETINE
     Indication: Memory impairment
     Dosage: 10 MILLIGRAM
     Route: 048
     Dates: start: 2008
  6. QUETIAPINE [Concomitant]
     Active Substance: QUETIAPINE
     Indication: Hallucination
     Route: 048
     Dates: start: 2018
  7. MEMANTINE [Concomitant]
     Active Substance: MEMANTINE
     Indication: Memory impairment
     Dosage: 20 MILLIGRAM
     Route: 048
     Dates: start: 202004
  8. Esomeprazol sandoz [Concomitant]
     Indication: Gastrointestinal disorder prophylaxis
     Dosage: 40 MILLIGRAM
     Route: 048
     Dates: start: 201804
  9. QUETIAPINE FUMARATE [Concomitant]
     Active Substance: QUETIAPINE FUMARATE
     Indication: Hallucination
     Dosage: 100 MILLIGRAM
     Route: 048
     Dates: start: 2018
  10. ASPIRIN [Concomitant]
     Active Substance: ASPIRIN
     Indication: Cerebrovascular accident
     Dosage: 100 MILLIGRAM
     Route: 048
     Dates: start: 2008

REACTIONS (4)
  - Death [Fatal]
  - Abdominal pain [Not Recovered/Not Resolved]
  - Diarrhoea [Not Recovered/Not Resolved]
  - General physical health deterioration [Not Recovered/Not Resolved]

NARRATIVE: CASE EVENT DATE: 20241231
